FAERS Safety Report 23061072 (Version 1)
Quarter: 2023Q4

REPORT INFORMATION
  Report Type: Spontaneous
  Country: US (occurrence: US)
  Receive Date: 20231013
  Receipt Date: 20231013
  Transmission Date: 20240109
  Serious: Yes (Other)
  Sender: FDA-Public Use
  Company Number: US-STERISCIENCE B.V.-2023-ST-001759

PATIENT
  Age: 79 Year
  Sex: Male

DRUGS (8)
  1. MYCOPHENOLATE MOFETIL [Suspect]
     Active Substance: MYCOPHENOLATE MOFETIL
     Indication: Immunosuppressant drug therapy
     Dosage: UNK
     Route: 065
  2. BASILIXIMAB [Suspect]
     Active Substance: BASILIXIMAB
     Indication: Immunosuppressant drug therapy
     Dosage: UNK
     Route: 065
  3. TACROLIMUS [Suspect]
     Active Substance: TACROLIMUS
     Indication: Immunosuppressant drug therapy
     Dosage: UNK
     Route: 065
  4. PREDNISONE [Suspect]
     Active Substance: PREDNISONE
     Indication: Immunosuppressant drug therapy
     Dosage: UNK
     Route: 065
  5. EVEROLIMUS [Concomitant]
     Active Substance: EVEROLIMUS
     Indication: Product used for unknown indication
     Dosage: UNK
     Route: 065
  6. CIDOFOVIR [Concomitant]
     Active Substance: CIDOFOVIR
     Indication: Myopathy
     Dosage: UNK
     Route: 065
  7. Immunoglobulin [Concomitant]
     Indication: Myopathy
     Dosage: UNK
     Route: 042
  8. Immunoglobulin [Concomitant]
     Indication: Polyomavirus viraemia

REACTIONS (4)
  - Polyomavirus viraemia [Unknown]
  - Cytomegalovirus viraemia [Recovered/Resolved]
  - JC virus infection [Recovered/Resolved]
  - Epstein-Barr viraemia [Recovered/Resolved]
